FAERS Safety Report 6075612-2 (Version None)
Quarter: 2009Q1

REPORT INFORMATION
  Report Type: 
  Country: None (occurrence: None)
  Receive Date: 20090212
  Receipt Date: 20090203
  Transmission Date: 20090719
  Serious: Yes (Life-Threatening, Other)
  Sender: FDA-Public Use
  Company Number: US-PFIZER INC-2008097768

PATIENT
  Sex: Female
  Weight: 53.061 kg

DRUGS (5)
  1. NAPROXEN AND NAPROXEN SODIUM [Suspect]
  2. ZYRTEC [Suspect]
  3. CYMBALTA [Suspect]
     Indication: DEPRESSION
     Dosage: UNK
  4. RISPERDAL [Suspect]
  5. FLUOXETINE HYDROCHLORIDE [Suspect]

REACTIONS (2)
  - INTENTIONAL OVERDOSE [None]
  - SUICIDE ATTEMPT [None]
